FAERS Safety Report 5720303-8 (Version None)
Quarter: 2008Q2

REPORT INFORMATION
  Report Type: 
  Country: None (occurrence: None)
  Receive Date: 20080428
  Receipt Date: 20080416
  Transmission Date: 20081010
  Serious: Yes (Hospitalization, Other)
  Sender: FDA-Public Use
  Company Number: US-PFIZER INC-2008025124

PATIENT
  Sex: Female
  Weight: 58.2 kg

DRUGS (5)
  1. CHANTIX [Suspect]
     Indication: SMOKING CESSATION THERAPY
     Route: 048
     Dates: start: 20080123, end: 20080315
  2. ALCOHOL [Interacting]
  3. COPAXONE [Concomitant]
     Dosage: DAILY DOSE:20MG
     Route: 058
  4. VALIUM [Concomitant]
  5. AMBIEN [Concomitant]

REACTIONS (19)
  - ABDOMINAL PAIN [None]
  - AGGRESSION [None]
  - CONCUSSION [None]
  - CONFUSIONAL STATE [None]
  - CONTUSION [None]
  - DIZZINESS [None]
  - DRUG INTERACTION [None]
  - ECCHYMOSIS [None]
  - EYE SWELLING [None]
  - FACIAL BONES FRACTURE [None]
  - FALL [None]
  - HAEMORRHAGE [None]
  - INSOMNIA [None]
  - LOSS OF CONSCIOUSNESS [None]
  - MALAISE [None]
  - MENTAL STATUS CHANGES [None]
  - SKIN LACERATION [None]
  - SWELLING FACE [None]
  - VICTIM OF SEXUAL ABUSE [None]
